FAERS Safety Report 21079825 (Version 1)
Quarter: 2022Q3

REPORT INFORMATION
  Report Type: Spontaneous
  Country: FI (occurrence: FI)
  Receive Date: 20220714
  Receipt Date: 20220714
  Transmission Date: 20221026
  Serious: Yes (Other)
  Sender: FDA-Public Use
  Company Number: FI-MLMSERVICE-20220628-3642046-1

PATIENT
  Age: 38 Year
  Sex: Male

DRUGS (7)
  1. OLANZAPINE [Suspect]
     Active Substance: OLANZAPINE
     Indication: Anxiety
     Dosage: 5 MILLIGRAM, TWO TIMES A DAY
     Route: 065
  2. OLANZAPINE [Suspect]
     Active Substance: OLANZAPINE
     Indication: Antipsychotic therapy
     Dosage: 15 MILLIGRAM, ONCE A DAY
     Route: 065
  3. ACETAMINOPHEN [Concomitant]
     Active Substance: ACETAMINOPHEN
     Indication: Tension headache
     Dosage: UNK
     Route: 065
  4. CANDESARTAN [Concomitant]
     Active Substance: CANDESARTAN
     Indication: Hypertension
     Dosage: 4 MILLIGRAM
     Route: 065
  5. IBUPROFEN [Concomitant]
     Active Substance: IBUPROFEN
     Indication: Tension headache
     Dosage: UNK
     Route: 065
  6. OXAZEPAM [Concomitant]
     Active Substance: OXAZEPAM
     Indication: Anxiety
     Dosage: 7.5 MILLIGRAM (1?3 TIMES A DAY)
     Route: 065
  7. OXAZEPAM [Concomitant]
     Active Substance: OXAZEPAM
     Dosage: 15 MILLIGRAM(1?3 TIMES A DAY)
     Route: 065

REACTIONS (7)
  - Hyperprolactinaemia [Unknown]
  - Therapeutic response decreased [Unknown]
  - Anxiety [Recovered/Resolved]
  - Delusion [Recovered/Resolved]
  - Fatigue [Unknown]
  - Frustration tolerance decreased [Unknown]
  - Drug-genetic interaction [Unknown]
